FAERS Safety Report 18297242 (Version 2)
Quarter: 2020Q4

REPORT INFORMATION
  Report Type: Spontaneous
  Country: US (occurrence: US)
  Receive Date: 20200922
  Receipt Date: 20201005
  Transmission Date: 20210113
  Serious: Yes (Hospitalization)
  Sender: FDA-Public Use
  Company Number: US-BEXIMCO-2020BEX00136

PATIENT
  Age: 61 Year
  Sex: Female
  Weight: 79.37 kg

DRUGS (3)
  1. METFORMIN HYDROCHLORIDE. [Suspect]
     Active Substance: METFORMIN HYDROCHLORIDE
     Indication: DIABETES MELLITUS
     Dosage: 1000 MG, 2X/DAY, IN THE MORNING AND EVENING
     Route: 048
  2. UNSPECIFIED BLOOD PRESSURE MEDICATION [Concomitant]
     Active Substance: UNSPECIFIED INGREDIENT
  3. UNSPECIFIED MEDICATIONS [Concomitant]
     Active Substance: UNSPECIFIED INGREDIENT

REACTIONS (5)
  - Tooth extraction [Unknown]
  - Toothache [Unknown]
  - Cerebrovascular accident [Unknown]
  - Hypertension [Recovering/Resolving]
  - Lethargy [Unknown]

NARRATIVE: CASE EVENT DATE: 202008
